FAERS Safety Report 18042711 (Version 1)
Quarter: 2020Q3

REPORT INFORMATION
  Report Type: Spontaneous
  Country: US (occurrence: US)
  Receive Date: 20200717
  Receipt Date: 20200717
  Transmission Date: 20201103
  Serious: Yes (Hospitalization)
  Sender: FDA-Public Use
  Company Number: None

PATIENT
  Age: 82 Year
  Sex: Male
  Weight: 101 kg

DRUGS (22)
  1. DEXAMETHASONE. [Concomitant]
     Active Substance: DEXAMETHASONE
  2. NOREPINEPHRINE. [Concomitant]
     Active Substance: NOREPINEPHRINE
  3. MEMANTINE. [Concomitant]
     Active Substance: MEMANTINE
  4. GAPABENTIN [Concomitant]
  5. LEVETIRACETAM. [Concomitant]
     Active Substance: LEVETIRACETAM
  6. OXYBUTYNIN. [Concomitant]
     Active Substance: OXYBUTYNIN CHLORIDE
  7. SUCCINYLCHOLINE [Concomitant]
     Active Substance: SUCCINYLCHOLINE
  8. PROPOFOL. [Concomitant]
     Active Substance: PROPOFOL
  9. FAMOTIDINE. [Concomitant]
     Active Substance: FAMOTIDINE
  10. MEROPENEM. [Concomitant]
     Active Substance: MEROPENEM
  11. FENTANYL. [Concomitant]
     Active Substance: FENTANYL
  12. ATORVASTATIN [Concomitant]
     Active Substance: ATORVASTATIN
  13. DULOXETINE. [Concomitant]
     Active Substance: DULOXETINE
  14. ETOMIDATE. [Concomitant]
     Active Substance: ETOMIDATE
  15. LORAZEPAM. [Concomitant]
     Active Substance: LORAZEPAM
  16. REMDESIVIR. [Suspect]
     Active Substance: REMDESIVIR
     Indication: COVID-19
     Route: 041
  17. FUROSEMIDE. [Concomitant]
     Active Substance: FUROSEMIDE
  18. IPRATROPIUM [Concomitant]
     Active Substance: IPRATROPIUM
  19. INSULIN LISPRO [Concomitant]
     Active Substance: INSULIN LISPRO
  20. MIDAZOLAM. [Concomitant]
     Active Substance: MIDAZOLAM
  21. AZITHROMCYIN [Concomitant]
  22. HEPARIN [Concomitant]
     Active Substance: HEPARIN SODIUM

REACTIONS (1)
  - Glomerular filtration rate decreased [None]

NARRATIVE: CASE EVENT DATE: 20200716
